FAERS Safety Report 5113334-2 (Version None)
Quarter: 2006Q3

REPORT INFORMATION
  Report Type: 
  Country: None (occurrence: None)
  Receive Date: 20060920
  Receipt Date: 20060907
  Transmission Date: 20061208
  Serious: Yes (Other)
  Sender: FDA-Public Use
  Company Number: 2006110756

PATIENT
  Age: 34 Year
  Sex: Male

DRUGS (3)
  1. SOLU-MEDROL [Suspect]
  2. REBIF [Suspect]
  3. LIPITOR [Concomitant]

REACTIONS (1)
  - DIABETES MELLITUS NON-INSULIN-DEPENDENT [None]
